FAERS Safety Report 20764524 (Version 1)
Quarter: 2022Q2

REPORT INFORMATION
  Report Type: Report from Study
  Country: US (occurrence: US)
  Receive Date: 20220428
  Receipt Date: 20220428
  Transmission Date: 20220721
  Serious: Yes (Hospitalization, Other)
  Sender: FDA-Public Use
  Company Number: US-GLAXOSMITHKLINE-US2022GSK062306

PATIENT
  Age: 35 Year
  Sex: Female
  Weight: 44.6 kg

DRUGS (6)
  1. DOSTARLIMAB [Suspect]
     Active Substance: DOSTARLIMAB
     Indication: Breast cancer
     Dosage: 500 MG, WE
     Route: 042
     Dates: start: 20210922, end: 20210922
  2. DOSTARLIMAB [Suspect]
     Active Substance: DOSTARLIMAB
     Dosage: 500 MG, WE
     Route: 042
     Dates: start: 20211013, end: 20211013
  3. ENCEQUIDAR MESYLATE MONOHYDRATE [Suspect]
     Active Substance: ENCEQUIDAR MESYLATE MONOHYDRATE
     Indication: Breast cancer
     Dosage: 205 MG/M2 (ONCE EVERY 3 WEEKS)
     Route: 048
     Dates: start: 20210922, end: 20211020
  4. ENCEQUIDAR MESYLATE MONOHYDRATE [Suspect]
     Active Substance: ENCEQUIDAR MESYLATE MONOHYDRATE
     Dosage: 15 MG (ONCE EVERY 3 WEEKS)
     Route: 042
     Dates: start: 20210922, end: 20210922
  5. ENCEQUIDAR MESYLATE MONOHYDRATE [Suspect]
     Active Substance: ENCEQUIDAR MESYLATE MONOHYDRATE
     Dosage: 15 MG (ONCE EVERY 3 WEEKS)
     Route: 042
     Dates: start: 20211020, end: 20211020
  6. LOPERAMIDE [Concomitant]
     Active Substance: LOPERAMIDE
     Indication: Diarrhoea
     Dosage: 2 MG, PRN
     Route: 048
     Dates: start: 20220311

REACTIONS (2)
  - Colitis [Not Recovered/Not Resolved]
  - Abdominal pain [Unknown]

NARRATIVE: CASE EVENT DATE: 20220405
